FAERS Safety Report 7351218-X (Version None)
Quarter: 2011Q1

REPORT INFORMATION
  Report Type: 
  Country: None (occurrence: None)
  Receive Date: 20110314
  Receipt Date: 20110305
  Transmission Date: 20110831
  Serious: Yes (Hospitalization)
  Sender: FDA-Public Use
  Company Number: US-ASTRAZENECA-2009UW03013

PATIENT
  Age: 31784 Day
  Sex: Female

DRUGS (2)
  1. CRESTOR [Suspect]
     Route: 048
  2. NEXIUM [Suspect]
     Route: 048

REACTIONS (6)
  - INJURY ASSOCIATED WITH DEVICE [None]
  - FALL [None]
  - ABDOMINAL PAIN [None]
  - THORACIC VERTEBRAL FRACTURE [None]
  - IMPAIRED GASTRIC EMPTYING [None]
  - DRUG DOSE OMISSION [None]
